FAERS Safety Report 4384762-8 (Version None)
Quarter: 2004Q2

REPORT INFORMATION
  Report Type: 
  Country: None (occurrence: None)
  Receive Date: 20040625
  Receipt Date: 20040520
  Transmission Date: 20050107
  Serious: Yes (Hospitalization)
  Sender: FDA-Public Use
  Company Number: US-BRISTOL-MYERS SQUIBB COMPANY-12592101

PATIENT
  Age: 69 Year
  Sex: Female
  Weight: 68 kg

DRUGS (14)
  1. ERBITUX [Suspect]
     Indication: COLON CANCER
     Dosage: GIVEN ON 15,24-MAR AND 01,08, 26APR AND 06MAY04 (450 MG)-0VER 2 HR
     Route: 042
     Dates: start: 20040506, end: 20040506
  2. CAMPTOSAR [Concomitant]
     Route: 042
  3. KYTRIL [Concomitant]
     Indication: PREMEDICATION
     Dates: start: 20040506, end: 20040506
  4. BENADRYL [Concomitant]
     Indication: PREMEDICATION
     Dates: start: 20040506, end: 20040506
  5. COUMADIN [Concomitant]
     Dosage: DOSAGE FORM = 2.5 MG/DAY ALTERNATING WITH 5 MG/DAY, HELD AS OF 26-APR-04
  6. DIGITEK [Concomitant]
  7. TORSEMIDE [Concomitant]
  8. METOPROLOL TARTRATE [Concomitant]
  9. ASPIRIN [Concomitant]
  10. ATROPINE [Concomitant]
  11. ALTACE [Concomitant]
  12. LASIX [Concomitant]
  13. GLYBURIDE [Concomitant]
  14. AMBIEN [Concomitant]

REACTIONS (2)
  - HYPOCALCAEMIA [None]
  - HYPOMAGNESAEMIA [None]
